FAERS Safety Report 7060777-6 (Version None)
Quarter: 2010Q4

REPORT INFORMATION
  Report Type: 
  Country: None (occurrence: None)
  Receive Date: 20101025
  Receipt Date: 20100922
  Transmission Date: 20110411
  Serious: No
  Sender: FDA-Public Use
  Company Number: US-BAYER-201034455NA

PATIENT
  Age: 82 Year
  Sex: Female

DRUGS (7)
  1. AVELOX [Suspect]
     Indication: BACTERAEMIA
     Route: 042
     Dates: start: 20100919, end: 20100922
  2. ACETAMINOPHEN [Concomitant]
  3. MULTI-VITAMINS [Concomitant]
  4. UNKNOWN DRUG [Concomitant]
     Indication: NAUSEA
  5. ASPIRIN [Concomitant]
  6. ATENOLOL [Concomitant]
  7. HEPARIN [Concomitant]

REACTIONS (1)
  - OEDEMA PERIPHERAL [None]
